FAERS Safety Report 4289528-5 (Version None)
Quarter: 2004Q1

REPORT INFORMATION
  Report Type: 
  Country: None (occurrence: None)
  Receive Date: 20040120
  Receipt Date: 20030127
  Transmission Date: 20041129
  Serious: Yes (Hospitalization)
  Sender: FDA-Public Use
  Company Number: 03P-163-0209537-00

PATIENT
  Age: 30 Year
  Sex: Female
  Weight: 68.0396 kg

DRUGS (4)
  1. OMNICEF [Suspect]
     Indication: BUNION OPERATION
     Dosage: 300 MG, 2 IN 1 D, PER ORAL
     Route: 048
     Dates: start: 20030829, end: 20020901
  2. OMNICEF [Suspect]
     Indication: PROPHYLAXIS
     Dosage: 300 MG, 2 IN 1 D, PER ORAL
     Route: 048
     Dates: start: 20030829, end: 20020901
  3. IBUPROFEN [Concomitant]
  4. ACETAMINOPHEN W/ CODEINE [Concomitant]

REACTIONS (1)
  - CLOSTRIDIUM COLITIS [None]
